FAERS Safety Report 12162313 (Version 2)
Quarter: 2016Q2

REPORT INFORMATION
  Report Type: Spontaneous
  Country: CA (occurrence: CA)
  Receive Date: 20160309
  Receipt Date: 20160511
  Transmission Date: 20160815
  Serious: Yes (Other)
  Sender: FDA-Public Use
  Company Number: CA-SUN PHARMACEUTICAL INDUSTRIES LTD-2016US-112436

PATIENT
  Age: 53 Year
  Sex: Female

DRUGS (7)
  1. FORMOTEROL FUMARATE DIHYDRATE [Suspect]
     Active Substance: FORMOTEROL FUMARATE DIHYDRATE
     Indication: ASTHMA
     Dosage: 6 ?G, BID (2 DOSES)
     Route: 065
  2. 17 BETA ESTRADIOL [Concomitant]
     Indication: POLYCYSTIC OVARIES
     Dosage: DAILY
     Route: 062
     Dates: start: 1996
  3. ALENDRONIC ACID [Suspect]
     Active Substance: ALENDRONIC ACID
     Indication: BONE DENSITY DECREASED
     Dosage: 70 MG, 1/WEEK
     Route: 065
  4. BUDESONIDE. [Suspect]
     Active Substance: BUDESONIDE
     Indication: ASTHMA
     Dosage: UNK
     Route: 065
  5. CALCIUM [Concomitant]
     Active Substance: CALCIUM
     Indication: SUPPLEMENTATION THERAPY
     Dosage: 500 MG, DAILY
     Route: 065
  6. VITAMIN D [Concomitant]
     Active Substance: CHOLECALCIFEROL
     Indication: SUPPLEMENTATION THERAPY
     Dosage: 1000 IU, DAILY
     Route: 065
  7. MOMETASONE [Suspect]
     Active Substance: MOMETASONE
     Indication: ASTHMA
     Dosage: 50 ?G, BID (2 DOSES DIE OR TWICE DAILY)
     Route: 065

REACTIONS (1)
  - Stress fracture [Recovered/Resolved]
